FAERS Safety Report 5498806-3 (Version None)
Quarter: 2007Q4

REPORT INFORMATION
  Report Type: 
  Country: None (occurrence: None)
  Receive Date: 20071026
  Receipt Date: 20070720
  Transmission Date: 20080405
  Serious: Yes (Other)
  Sender: FDA-Public Use
  Company Number: A0665375A

PATIENT
  Age: 66 Year
  Sex: Female

DRUGS (8)
  1. ADVAIR DISKUS 100/50 [Suspect]
     Indication: CHRONIC OBSTRUCTIVE PULMONARY DISEASE
     Dosage: 1PUFF PER DAY
     Route: 055
  2. CELEBREX [Concomitant]
  3. BUSPAR [Concomitant]
  4. LUNESTA [Concomitant]
  5. SYNTHROID [Concomitant]
  6. SPIRIVA [Concomitant]
  7. MUCINEX [Concomitant]
  8. NEBULIZER [Concomitant]

REACTIONS (7)
  - CATARACT [None]
  - DRUG INEFFECTIVE [None]
  - GLAUCOMA [None]
  - HEADACHE [None]
  - INTRAOCULAR PRESSURE INCREASED [None]
  - NAUSEA [None]
  - UPPER RESPIRATORY TRACT INFECTION [None]
